FAERS Safety Report 12965179 (Version 2)
Quarter: 2016Q4

REPORT INFORMATION
  Report Type: Spontaneous
  Country: TH (occurrence: TH)
  Receive Date: 20161122
  Receipt Date: 20161130
  Transmission Date: 20170207
  Serious: Yes (Hospitalization)
  Sender: FDA-Public Use
  Company Number: TH-SA-2016SA212691

PATIENT
  Age: 5 Month
  Sex: Female
  Weight: 8.2 kg

DRUGS (4)
  1. TRIAMCINOLONE ACETONIDE. [Suspect]
     Active Substance: TRIAMCINOLONE ACETONIDE
     Indication: DERMATITIS
     Dosage: 3-4 TIMES DAILY
     Route: 061
  2. GRAMICIDIN [Concomitant]
     Active Substance: GRAMICIDIN
     Dosage: 3-4 TIMES DAILY
     Route: 061
  3. NYSTATIN. [Concomitant]
     Active Substance: NYSTATIN
     Dosage: 3-4 TIMES DAILY
     Route: 061
  4. NEOMYCIN [Concomitant]
     Active Substance: NEOMYCIN
     Dosage: 3-4 TIMES DAILY
     Route: 061

REACTIONS (9)
  - Cushingoid [Unknown]
  - Hirsutism [Unknown]
  - Wound secretion [Unknown]
  - Medication error [Unknown]
  - Obesity [Unknown]
  - Lipohypertrophy [Unknown]
  - Cushing^s syndrome [Unknown]
  - Secondary adrenocortical insufficiency [Unknown]
  - Erythema [Unknown]
